FAERS Safety Report 6112624-4 (Version None)
Quarter: 2009Q1

REPORT INFORMATION
  Report Type: 
  Country: None (occurrence: None)
  Receive Date: 20090312
  Receipt Date: 20090305
  Transmission Date: 20090719
  Serious: Yes (Hospitalization)
  Sender: FDA-Public Use
  Company Number: GB-WYE-G03203409

PATIENT
  Sex: Male

DRUGS (2)
  1. GEMTUZUMAB OZOGAMICIN [Suspect]
     Dosage: UNKNOWN
     Dates: start: 20090223
  2. ARA-C [Suspect]
     Dosage: UNKNOWN
     Dates: start: 20090223

REACTIONS (2)
  - CHILLS [None]
  - MYOCARDIAL INFARCTION [None]
